FAERS Safety Report 13007829 (Version 1)
Quarter: 2016Q4

REPORT INFORMATION
  Report Type: Spontaneous
  Country: AU (occurrence: AU)
  Receive Date: 20161207
  Receipt Date: 20161207
  Transmission Date: 20170207
  Serious: Yes (Death)
  Sender: FDA-Public Use
  Company Number: AU-009507513-1612AUS002053

PATIENT
  Age: 30 Year
  Sex: Female
  Weight: 80 kg

DRUGS (2)
  1. KEYTRUDA [Suspect]
     Active Substance: PEMBROLIZUMAB
     Dosage: 160 MG, Q3W
     Route: 042
     Dates: start: 20150714, end: 20151018
  2. RIVAROXABAN [Concomitant]
     Active Substance: RIVAROXABAN
     Dosage: UNK, DAILY
     Route: 048
     Dates: end: 20151031

REACTIONS (2)
  - Generalised tonic-clonic seizure [Fatal]
  - Disease progression [Fatal]

NARRATIVE: CASE EVENT DATE: 20151019
